FAERS Safety Report 12988228 (Version 1)
Quarter: 2016Q4

REPORT INFORMATION
  Report Type: Spontaneous
  Country: FR (occurrence: FR)
  Receive Date: 20161130
  Receipt Date: 20161130
  Transmission Date: 20170207
  Serious: Yes (Hospitalization)
  Sender: FDA-Public Use
  Company Number: FR-SAOL THERAPEUTICS-2016SAO01128

PATIENT
  Age: 33 Year
  Sex: Female

DRUGS (8)
  1. BACLOFEN. [Suspect]
     Active Substance: BACLOFEN
     Dosage: 270 MG, 1X/DAY
     Route: 065
     Dates: end: 20150205
  2. BACLOFEN. [Suspect]
     Active Substance: BACLOFEN
     Dosage: 240 MG, 1X/DAY
     Route: 065
     Dates: start: 20150206, end: 20150210
  3. ESCITALOPRAM [Concomitant]
     Active Substance: ESCITALOPRAM OXALATE
     Indication: DEPRESSIVE SYMPTOM
     Dosage: 10 MG, 1X/DAY
     Route: 065
     Dates: start: 2014, end: 201408
  4. BACLOFEN. [Suspect]
     Active Substance: BACLOFEN
     Indication: ALCOHOLISM
     Dosage: 60 MG, 1X/DAY
     Route: 065
     Dates: start: 201403
  5. BACLOFEN. [Suspect]
     Active Substance: BACLOFEN
     Dosage: 180 MG, 1X/DAY
     Route: 065
     Dates: start: 20150216, end: 20150222
  6. ESCITALOPRAM [Concomitant]
     Active Substance: ESCITALOPRAM OXALATE
     Indication: ANXIETY
     Dosage: 20 MG, 1X/DAY
     Route: 065
     Dates: start: 201408, end: 201501
  7. BACLOFEN. [Suspect]
     Active Substance: BACLOFEN
     Dosage: 210 MG, 1X/DAY
     Dates: start: 20150211, end: 20150215
  8. BACLOFEN. [Suspect]
     Active Substance: BACLOFEN
     Dosage: 150 MG, 1X/DAY
     Route: 065
     Dates: start: 20150223

REACTIONS (1)
  - Mania [Recovered/Resolved]

NARRATIVE: CASE EVENT DATE: 201410
